FAERS Safety Report 17798939 (Version 2)
Quarter: 2020Q2

REPORT INFORMATION
  Report Type: Spontaneous
  Country: JP (occurrence: JP)
  Receive Date: 20200518
  Receipt Date: 20200520
  Transmission Date: 20200714
  Serious: Yes (Hospitalization, Other)
  Sender: FDA-Public Use
  Company Number: JP-PFIZER INC-2020189100

PATIENT
  Age: 88 Year
  Sex: Male
  Weight: 43 kg

DRUGS (3)
  1. AMLODIPINE BESILATE [Suspect]
     Active Substance: AMLODIPINE BESYLATE
     Dosage: 5 MG, DAILY
  2. AMLODIPINE BESILATE [Suspect]
     Active Substance: AMLODIPINE BESYLATE
     Dosage: 10 MG, DAILY
  3. ELIQUIS [Suspect]
     Active Substance: APIXABAN
     Dosage: 2 DF
     Dates: start: 202001

REACTIONS (6)
  - Anaemia [Unknown]
  - Cancer pain [Unknown]
  - Blood creatinine increased [Unknown]
  - Faeces discoloured [Unknown]
  - Lung neoplasm malignant [Unknown]
  - Blood pressure decreased [Unknown]

NARRATIVE: CASE EVENT DATE: 2020
